FAERS Safety Report 9258132 (Version 1)
Quarter: 2013Q1

REPORT INFORMATION
  Report Type: Spontaneous
  Country: US (occurrence: None)
  Receive Date: 20121212
  Receipt Date: 20121212
  Transmission Date: 20140127
  Serious: No
  Sender: FDA-Public Use
  Company Number: 1208USA008397

PATIENT
  Age: 54 Year
  Sex: Male

DRUGS (4)
  1. PEGINTRON [Suspect]
     Indication: HEPATITIS C
     Route: 050
     Dates: start: 20120602
  2. VICTRELIS [Suspect]
     Dates: start: 20120622
  3. RIBASPHERE (RIBAVIRIN), 600MG [Concomitant]
  4. PANTOPRAZOLE (PANTOPRAZOLE) [Concomitant]

REACTIONS (3)
  - Fatigue [None]
  - White blood cell count decreased [None]
  - Adverse event [None]
